FAERS Safety Report 8193646-9 (Version None)
Quarter: 2012Q1

REPORT INFORMATION
  Report Type: 
  Country: None (occurrence: None)
  Receive Date: 20120308
  Receipt Date: 20120227
  Transmission Date: 20120608
  Serious: Yes (Hospitalization)
  Sender: FDA-Public Use
  Company Number: US-JNJFOC-20120214400

PATIENT
  Sex: Female
  Weight: 51.6 kg

DRUGS (4)
  1. MESALAMINE [Concomitant]
     Route: 048
  2. ADALIMUMAB [Concomitant]
     Dates: start: 20101128
  3. NEXIUM [Concomitant]
  4. INFLIXIMAB, RECOMBINANT [Suspect]
     Indication: CROHN'S DISEASE
     Route: 042
     Dates: start: 20100831

REACTIONS (3)
  - DEHYDRATION [None]
  - CROHN'S DISEASE [None]
  - CONDITION AGGRAVATED [None]
